FAERS Safety Report 11595095 (Version 1)
Quarter: 2015Q4

REPORT INFORMATION
  Report Type: Spontaneous
  Country: US (occurrence: US)
  Receive Date: 20151006
  Receipt Date: 20151006
  Transmission Date: 20160304
  Serious: No
  Sender: FDA-Public Use
  Company Number: US-LUPIN PHARMACEUTICALS INC.-2015-02505

PATIENT
  Sex: Female
  Weight: 83 kg

DRUGS (13)
  1. DULOXETINE DELAYED-RELEASE 30 MG CAPSULES USP [Suspect]
     Active Substance: DULOXETINE
     Indication: PAIN
     Route: 065
  2. LACTULOSE. [Concomitant]
     Active Substance: LACTULOSE
     Dosage: 6 TABLESPOONS 3 TIMES A DAY
     Route: 065
  3. SYNTHROID [Concomitant]
     Active Substance: LEVOTHYROXINE SODIUM
     Indication: THYROID DISORDER
     Route: 065
  4. MINERAL OIL. [Concomitant]
     Active Substance: MINERAL OIL
     Indication: GASTROINTESTINAL DISORDER
     Dosage: 5 TABLESPOONS 3 TIMES A DAY
     Route: 065
  5. DOMPERIDONE [Concomitant]
     Active Substance: DOMPERIDONE
     Indication: GASTRIC DISORDER
     Route: 065
  6. OMEPRAZOLE. [Concomitant]
     Active Substance: OMEPRAZOLE
     Indication: GASTROOESOPHAGEAL REFLUX DISEASE
     Route: 065
  7. MINERAL OIL. [Concomitant]
     Active Substance: MINERAL OIL
     Dosage: 6 TABLESPOONS 3 TIMES A DAY
     Route: 065
  8. CALTRATE CALCIUM [Concomitant]
     Indication: BACK INJURY
     Route: 048
  9. BABY ASPIRIN [Concomitant]
     Active Substance: ASPIRIN
     Indication: CORONARY ARTERY BYPASS
     Route: 065
  10. TYLENOL WITH CODEINE [Concomitant]
     Active Substance: ACETAMINOPHEN\CODEINE PHOSPHATE
     Indication: PRODUCT USED FOR UNKNOWN INDICATION
     Route: 065
  11. LACTULOSE. [Concomitant]
     Active Substance: LACTULOSE
     Indication: GASTROINTESTINAL DISORDER
     Dosage: 5 TABLESPOONS 3 TIMES A DAY
     Route: 065
  12. METAMUCIL [Concomitant]
     Active Substance: PLANTAGO SEED
     Indication: GASTROINTESTINAL DISORDER
     Dosage: 1 TABLESPOON 3 TIMES A DAY
     Route: 065
  13. VITAMIN D3 [Concomitant]
     Active Substance: CHOLECALCIFEROL
     Indication: BACK INJURY
     Route: 048

REACTIONS (4)
  - Condition aggravated [Unknown]
  - Drug dose omission [Unknown]
  - Faeces hard [Unknown]
  - Abdominal distension [Unknown]
